FAERS Safety Report 5652942-7 (Version None)
Quarter: 2008Q1

REPORT INFORMATION
  Report Type: 
  Country: None (occurrence: None)
  Receive Date: 20080306
  Receipt Date: 20080227
  Transmission Date: 20080703
  Serious: Yes (Death)
  Sender: FDA-Public Use
  Company Number: JP-AVENTIS-200810556JP

PATIENT
  Age: 75 Year
  Sex: Male
  Weight: 57 kg

DRUGS (6)
  1. TAXOTERE [Suspect]
     Route: 041
     Dates: start: 20080122, end: 20080122
  2. TAXOTERE [Suspect]
     Route: 041
     Dates: start: 20080212, end: 20080212
  3. KYTRIL                             /01178101/ [Concomitant]
     Indication: PREMEDICATION
     Route: 041
     Dates: start: 20080212, end: 20080212
  4. DECADRON [Concomitant]
     Indication: PREMEDICATION
     Route: 041
     Dates: start: 20080212, end: 20080212
  5. SOLUTIONS AFFECTING THE ELECTROLYTE BALANCE [Concomitant]
     Route: 041
     Dates: start: 20080212, end: 20080212
  6. INTRAFAT [Concomitant]
     Route: 041
     Dates: start: 20080212, end: 20080218

REACTIONS (3)
  - ACUTE PULMONARY OEDEMA [None]
  - ACUTE RESPIRATORY DISTRESS SYNDROME [None]
  - BONE MARROW FAILURE [None]
